FAERS Safety Report 13893811 (Version 1)
Quarter: 2017Q3

REPORT INFORMATION
  Report Type: Not Available
  Country: None (occurrence: US)
  Receive Date: 20170822
  Receipt Date: 20170822
  Transmission Date: 20171127
  Serious: No
  Sender: FDA-Public Use
  Company Number: US-AKORN-62854

PATIENT
  Age: 72 Year
  Sex: Female

DRUGS (1)
  1. TRIMETHOPRIM SULFATE AND POLYMYXIN B SULFATE OPHTHALMIC SOLUTION [Suspect]
     Active Substance: POLYMYXIN B SULFATE\TRIMETHOPRIM SULFATE

REACTIONS (1)
  - Dysgeusia [None]
